FAERS Safety Report 17193691 (Version 2)
Quarter: 2019Q4

REPORT INFORMATION
  Report Type: Report from Study
  Country: US (occurrence: US)
  Receive Date: 20191223
  Receipt Date: 20191230
  Transmission Date: 20200122
  Serious: Yes (Other)
  Sender: FDA-Public Use
  Company Number: US-JNJFOC-20191230773

PATIENT
  Age: 78 Year
  Sex: Male

DRUGS (5)
  1. ATIVAN [Concomitant]
     Active Substance: LORAZEPAM
  2. SPRAVATO [Suspect]
     Active Substance: ESKETAMINE
     Indication: DEPRESSION
     Dates: start: 201912
  3. SEROQUEL [Concomitant]
     Active Substance: QUETIAPINE FUMARATE
  4. SPRAVATO [Suspect]
     Active Substance: ESKETAMINE
     Dates: start: 201912, end: 201912
  5. SERTRALINE [Concomitant]
     Active Substance: SERTRALINE HYDROCHLORIDE

REACTIONS (5)
  - Dissociation [Recovered/Resolved]
  - Blood pressure increased [Recovered/Resolved]
  - Agitation [Recovered/Resolved]
  - Panic attack [Recovered/Resolved]
  - Screaming [Unknown]

NARRATIVE: CASE EVENT DATE: 20191213
